FAERS Safety Report 14687062 (Version 1)
Quarter: 2018Q1

REPORT INFORMATION
  Report Type: Spontaneous
  Country: GB (occurrence: GB)
  Receive Date: 20180327
  Receipt Date: 20180327
  Transmission Date: 20180509
  Serious: Yes (Other)
  Sender: FDA-Public Use
  Company Number: GB-AMGEN-GBRSP2018009385

PATIENT
  Age: 82 Year
  Sex: Female

DRUGS (2)
  1. ENBREL [Suspect]
     Active Substance: ETANERCEPT
     Indication: PRODUCT USED FOR UNKNOWN INDICATION
     Dosage: 50 MG, QWK
     Route: 058
     Dates: start: 2009, end: 20180112
  2. ENBREL [Suspect]
     Active Substance: ETANERCEPT
     Dosage: 50 MG, WEEKLY
     Route: 058
     Dates: start: 2018

REACTIONS (12)
  - Dysgeusia [Recovered/Resolved]
  - Decreased appetite [Recovered/Resolved]
  - Palpitations [Recovered/Resolved]
  - Respiratory rate increased [Recovered/Resolved]
  - Feeling abnormal [Recovered/Resolved]
  - Anxiety [Not Recovered/Not Resolved]
  - Malaise [Recovered/Resolved]
  - Gastrointestinal disorder [Recovered/Resolved]
  - Transient ischaemic attack [Unknown]
  - Blindness [Recovered/Resolved]
  - Weight decreased [Recovered/Resolved]
  - Heart rate increased [Recovered/Resolved]

NARRATIVE: CASE EVENT DATE: 201712
